FAERS Safety Report 8339587-5 (Version None)
Quarter: 2012Q2

REPORT INFORMATION
  Report Type: 
  Country: None (occurrence: None)
  Receive Date: 20120507
  Receipt Date: 20120502
  Transmission Date: 20120825
  Serious: Yes (Disabling)
  Sender: FDA-Public Use
  Company Number: PHHY2012CH037677

PATIENT
  Age: 69 Year
  Sex: Female
  Weight: 51 kg

DRUGS (1)
  1. ZOMETA [Suspect]
     Indication: BREAST CANCER
     Dosage: 4 MG ONE PER MONTH
     Route: 041
     Dates: start: 20100301, end: 20110701

REACTIONS (4)
  - OSTEOMYELITIS [None]
  - OSTEONECROSIS OF JAW [None]
  - ACTINOMYCOSIS [None]
  - EXPOSED BONE IN JAW [None]
